FAERS Safety Report 9314075 (Version 1)
Quarter: 2013Q2

REPORT INFORMATION
  Report Type: Spontaneous
  Country: US (occurrence: None)
  Receive Date: 20130524
  Receipt Date: 20130524
  Transmission Date: 20140414
  Serious: Yes (Life-Threatening)
  Sender: FDA-Public Use
  Company Number: None

PATIENT
  Age: 62 Year
  Sex: Female

DRUGS (1)
  1. ISOVUE [Suspect]
     Indication: NEPHROSTOMY
     Dosage: 20 CC
     Dates: start: 20130508, end: 20130508

REACTIONS (1)
  - Anaphylactoid reaction [None]
